FAERS Safety Report 6368384-5 (Version None)
Quarter: 2009Q3

REPORT INFORMATION
  Report Type: 
  Country: None (occurrence: None)
  Receive Date: 20090914
  Receipt Date: 20080613
  Transmission Date: 20100115
  Serious: Yes (Disabling)
  Sender: FDA-Public Use
  Company Number: 08H-163-0314422-00

PATIENT
  Sex: Female

DRUGS (1)
  1. LEVOPHED [Suspect]
     Indication: NEPHROLITHIASIS
     Dates: start: 20070817

REACTIONS (2)
  - NECROSIS [None]
  - POOR PERIPHERAL CIRCULATION [None]
